FAERS Safety Report 6184810-9 (Version None)
Quarter: 2009Q2

REPORT INFORMATION
  Report Type: 
  Country: None (occurrence: None)
  Receive Date: 20090508
  Receipt Date: 20090429
  Transmission Date: 20091009
  Serious: Yes (Life-Threatening, Hospitalization)
  Sender: FDA-Public Use
  Company Number: US-ELI_LILLY_AND_COMPANY-US200904004507

PATIENT
  Sex: Female

DRUGS (8)
  1. ZYPREXA [Suspect]
     Indication: BIPOLAR DISORDER
     Dosage: 7.5 MG, UNK
  2. FENTANYL [Concomitant]
  3. FLUCONAZOLE [Concomitant]
  4. HEPARIN [Concomitant]
  5. INSULIN [Concomitant]
  6. SYNTHROID [Concomitant]
  7. NOREPINEPHRINE [Concomitant]
  8. ZOSYN [Concomitant]

REACTIONS (13)
  - BLOOD ALBUMIN DECREASED [None]
  - BLOOD CALCIUM DECREASED [None]
  - BLOOD CHLORIDE INCREASED [None]
  - BLOOD CREATININE [None]
  - BLOOD TRIGLYCERIDES INCREASED [None]
  - BLOOD UREA INCREASED [None]
  - CARBON DIOXIDE ABNORMAL [None]
  - HAEMOGLOBIN DECREASED [None]
  - HOSPITALISATION [None]
  - INTESTINAL PERFORATION [None]
  - PLATELET DISORDER [None]
  - SEPSIS [None]
  - SHOCK [None]
